FAERS Safety Report 13239746 (Version 4)
Quarter: 2017Q2

REPORT INFORMATION
  Report Type: Spontaneous
  Country: US (occurrence: US)
  Receive Date: 20170216
  Receipt Date: 20170419
  Transmission Date: 20170830
  Serious: No
  Sender: FDA-Public Use
  Company Number: US-PFIZER INC-2017061657

PATIENT
  Age: 60 Year
  Sex: Female

DRUGS (9)
  1. XELJANZ XR [Suspect]
     Active Substance: TOFACITINIB CITRATE
     Indication: RHEUMATOID ARTHRITIS
     Dosage: 11 MG, DAILY
     Dates: start: 20161116
  2. SULFASALAZINE. [Concomitant]
     Active Substance: SULFASALAZINE
     Dosage: 1000 MG, 3X/DAY
     Route: 048
     Dates: start: 20161110
  3. TRAMADOL. [Concomitant]
     Active Substance: TRAMADOL
     Indication: POLYARTHRITIS
     Dosage: 50 MG, AS NEEDED (1 TABLET(S) EVERY 6-8 HOURS)
     Route: 048
     Dates: start: 20170110
  4. PREDNISONE. [Concomitant]
     Active Substance: PREDNISONE
     Indication: ARTHRITIS
     Dosage: 5 MG, 2X/DAY
     Dates: start: 20170110
  5. SERTRALINE [Concomitant]
     Active Substance: SERTRALINE HYDROCHLORIDE
     Indication: DEPRESSION
     Dosage: 100 MG, UNK
     Dates: start: 20161121
  6. XELJANZ XR [Suspect]
     Active Substance: TOFACITINIB CITRATE
     Dosage: 11 MG, DAILY
     Dates: start: 20161207
  7. TRAMADOL. [Concomitant]
     Active Substance: TRAMADOL
     Indication: PAIN
     Dosage: UNK, AS NEEDED (Q 6HRS)
  8. TRIAMCINOLONE ACETONIDE. [Concomitant]
     Active Substance: TRIAMCINOLONE ACETONIDE
     Dosage: UNK UNK, 2X/DAY
     Route: 061
     Dates: start: 20161109
  9. CALCIUM [Concomitant]
     Active Substance: CALCIUM
     Dosage: UNK (500)
     Dates: start: 20160503

REACTIONS (17)
  - Limb discomfort [Unknown]
  - Musculoskeletal discomfort [Unknown]
  - Drug effect incomplete [Unknown]
  - Exercise tolerance decreased [Unknown]
  - Loss of personal independence in daily activities [Unknown]
  - Musculoskeletal stiffness [Unknown]
  - Joint range of motion decreased [Unknown]
  - Finger deformity [Unknown]
  - Fatigue [Unknown]
  - Tenderness [Unknown]
  - Asthenia [Unknown]
  - Arthralgia [Unknown]
  - Motor dysfunction [Unknown]
  - Gout [Unknown]
  - Nodule [Unknown]
  - Peripheral swelling [Unknown]
  - Grip strength decreased [Unknown]
